FAERS Safety Report 8515071-0 (Version None)
Quarter: 2012Q3

REPORT INFORMATION
  Report Type: 
  Country: None (occurrence: None)
  Receive Date: 20120705
  Receipt Date: 20120621
  Transmission Date: 20120928
  Serious: Yes (Hospitalization, Other)
  Sender: FDA-Public Use
  Company Number: DSU-2012-05026

PATIENT
  Age: 54 Year
  Sex: Male
  Weight: 87.5442 kg

DRUGS (7)
  1. XANAX [Concomitant]
  2. BENICAR HCT [Suspect]
     Indication: HYPERTENSION
     Dosage: 40/12.5MG (QD),PER ORAL ; 1/2 (40/12.5MG) TABLET (1/2 (40/12.5MG) TABLET QD),PER ORAL
     Route: 048
     Dates: end: 20120101
  3. BENICAR HCT [Suspect]
     Indication: HYPERTENSION
     Dosage: 40/12.5MG (QD),PER ORAL ; 1/2 (40/12.5MG) TABLET (1/2 (40/12.5MG) TABLET QD),PER ORAL
     Route: 048
     Dates: start: 20120620
  4. LIPITOR [Concomitant]
  5. PROZAC (FLUOXETINE) (FLUOXETINE) [Concomitant]
  6. WELCHOL [Suspect]
     Indication: DIARRHOEA
     Dosage: 3750 MG (1250 MG,TID),PER ORAL
     Route: 048
     Dates: start: 20120101
  7. WELCHOL [Suspect]
     Indication: BLOOD CHOLESTEROL INCREASED
     Dosage: 3750 MG (1250 MG,TID),PER ORAL
     Route: 048
     Dates: start: 20120101

REACTIONS (4)
  - WEIGHT DECREASED [None]
  - DEHYDRATION [None]
  - COELIAC DISEASE [None]
  - DIARRHOEA [None]
